FAERS Safety Report 5235097-2 (Version None)
Quarter: 2007Q1

REPORT INFORMATION
  Report Type: 
  Country: None (occurrence: None)
  Receive Date: 20070205
  Receipt Date: 20070125
  Transmission Date: 20070707
  Serious: Yes (Other)
  Sender: FDA-Public Use
  Company Number: THYM-11226

PATIENT
  Age: 60 Year
  Sex: Female

DRUGS (2)
  1. THYMOGLOBULIN [Suspect]
     Indication: APLASTIC ANAEMIA
  2. ATGAM [Suspect]
     Indication: APLASTIC ANAEMIA

REACTIONS (2)
  - APLASTIC ANAEMIA [None]
  - DISEASE RECURRENCE [None]
